FAERS Safety Report 25303054 (Version 1)
Quarter: 2025Q2

REPORT INFORMATION
  Report Type: Report from Study
  Country: FR (occurrence: FR)
  Receive Date: 20250512
  Receipt Date: 20250512
  Transmission Date: 20250717
  Serious: Yes (Other)
  Sender: JAZZ
  Company Number: FR-PHARMAMAR- 2025PM000315

PATIENT

DRUGS (1)
  1. LURBINECTEDIN [Suspect]
     Active Substance: LURBINECTEDIN
     Indication: Product used for unknown indication

REACTIONS (2)
  - Pancytopenia [Unknown]
  - Mucosal inflammation [Unknown]
